FAERS Safety Report 5355627-X (Version None)
Quarter: 2007Q2

REPORT INFORMATION
  Report Type: 
  Country: None (occurrence: None)
  Receive Date: 20070613
  Receipt Date: 20070607
  Transmission Date: 20071010
  Serious: Yes (Life-Threatening)
  Sender: FDA-Public Use
  Company Number: B0474804A

PATIENT
  Age: 37 Year
  Sex: Female

DRUGS (2)
  1. LAMIVUDINE [Suspect]
     Indication: HIV INFECTION
     Dosage: 300MG PER DAY
     Route: 048
     Dates: start: 20060704, end: 20070505
  2. STAVUDINE [Suspect]
     Indication: HIV INFECTION
     Dosage: 80MG PER DAY
     Route: 048
     Dates: start: 20060704, end: 20070505

REACTIONS (3)
  - ACIDOSIS [None]
  - NAUSEA [None]
  - VOMITING [None]
